FAERS Safety Report 9270306 (Version 1)
Quarter: 2013Q2

REPORT INFORMATION
  Report Type: Spontaneous
  Country: NO (occurrence: NO)
  Receive Date: 20130503
  Receipt Date: 20130503
  Transmission Date: 20140414
  Serious: Yes (Other)
  Sender: FDA-Public Use
  Company Number: CHNY2013NO000486

PATIENT
  Age: 73 Year
  Sex: Male
  Weight: 69 kg

DRUGS (4)
  1. NICOTINELL TTS [Suspect]
     Dosage: 21 MG, QD
     Route: 062
     Dates: start: 20130110, end: 20130111
  2. NYCOPLUS B-TOTAL                   /00228301/ [Concomitant]
     Dosage: 1 DF, BID
     Dates: start: 20121228
  3. SELOZOK [Concomitant]
     Dosage: 50 MG, BID
     Dates: start: 20121228
  4. KALEORID [Concomitant]
     Indication: HYPOKALAEMIA
     Dosage: 750 MG, QD
     Dates: end: 20130110

REACTIONS (3)
  - Epilepsy [Unknown]
  - Feeling abnormal [Unknown]
  - Restlessness [Recovered/Resolved]
